FAERS Safety Report 4412372-2 (Version None)
Quarter: 2004Q2

REPORT INFORMATION
  Report Type: 
  Country: None (occurrence: None)
  Receive Date: 20040630
  Receipt Date: 20040401
  Transmission Date: 20050107
  Serious: No
  Sender: FDA-Public Use
  Company Number: 04P-163-0255592-00

PATIENT
  Age: 55 Year
  Sex: Female
  Weight: 79.3795 kg

DRUGS (7)
  1. HUMIRA [Suspect]
     Indication: RHEUMATOID ARTHRITIS
     Dosage: 40 MG 1 IN 2 WK SUBCUTANEOUS
     Route: 058
     Dates: start: 20040325
  2. LEVOTHYROXINE SODIUM [Concomitant]
  3. BUCINDOLOL HYDROCHLORIDE [Concomitant]
  4. FOLIC ACID [Concomitant]
  5. TOCOPHEROL CONCENTRATE CAP [Concomitant]
  6. ASCORBIC ACID [Concomitant]
  7. ALENDRONATE SODIUM [Concomitant]

REACTIONS (3)
  - DIARRHOEA [None]
  - INJECTION SITE BURNING [None]
  - MYALGIA [None]
